FAERS Safety Report 6207950-4 (Version None)
Quarter: 2009Q2

REPORT INFORMATION
  Report Type: 
  Country: None (occurrence: None)
  Receive Date: 20090529
  Receipt Date: 20081009
  Transmission Date: 20091009
  Serious: No
  Sender: FDA-Public Use
  Company Number: A0751355A

PATIENT
  Age: 78 Year
  Sex: Female

DRUGS (18)
  1. VENTOLIN [Suspect]
     Indication: ASTHMA
     Dosage: 2PUFF AS REQUIRED
     Route: 055
  2. LOTENSIN [Concomitant]
  3. SYNTHROID [Concomitant]
  4. PREVACID [Concomitant]
  5. SINGULAIR [Concomitant]
  6. MULTIVITAMIN + IRON [Concomitant]
  7. FIBERCHOICE UNSPECIFIED [Concomitant]
  8. CARTIA XT [Concomitant]
  9. REMERON [Concomitant]
  10. DUONEB [Concomitant]
  11. GUAIFENESIN [Concomitant]
  12. FORADIL [Concomitant]
  13. BROMIDE INHALER [Concomitant]
     Route: 045
  14. XANAX [Concomitant]
  15. COMBIVENT [Concomitant]
  16. MILK OF MAGNESIA TAB [Concomitant]
  17. SALINE NASAL SPRAY [Concomitant]
  18. OXYGEN [Concomitant]

REACTIONS (3)
  - OVERDOSE [None]
  - PALPITATIONS [None]
  - TREMOR [None]
